FAERS Safety Report 5678426-8 (Version None)
Quarter: 2008Q1

REPORT INFORMATION
  Report Type: 
  Country: None (occurrence: None)
  Receive Date: 20080320
  Receipt Date: 20080228
  Transmission Date: 20080703
  Serious: Yes (Hospitalization)
  Sender: FDA-Public Use
  Company Number: M-08-0193

PATIENT
  Age: 86 Year
  Sex: Female

DRUGS (3)
  1. PACERONE [Suspect]
     Indication: ATRIAL FIBRILLATION
     Dosage: 600 MG, QD, PO
     Route: 048
     Dates: start: 20080214, end: 20080218
  2. AMIODARONE HCL [Suspect]
     Indication: ATRIAL FIBRILLATION
     Dosage: 600 MG, QD
     Dates: start: 20080219, end: 20080220
  3. AMIODARONE HCL [Suspect]
     Indication: ATRIAL FIBRILLATION
     Dosage: 200 MG, QD
     Dates: start: 20080221, end: 20080227

REACTIONS (7)
  - ALVEOLITIS [None]
  - COUGH [None]
  - DRUG TOXICITY [None]
  - FATIGUE [None]
  - LUNG INFILTRATION [None]
  - PLEURAL EFFUSION [None]
  - RESPIRATORY DISTRESS [None]
